FAERS Safety Report 11379716 (Version 1)
Quarter: 2015Q3

REPORT INFORMATION
  Report Type: Spontaneous
  Country: US (occurrence: US)
  Receive Date: 20150814
  Receipt Date: 20150814
  Transmission Date: 20151125
  Serious: No
  Sender: FDA-Public Use
  Company Number: US-ORCHID HEALTHCARE-1041093

PATIENT
  Age: 63 Year
  Sex: Male
  Weight: 72.27 kg

DRUGS (17)
  1. TERBINAFINE HYDROCHLORIDE. [Suspect]
     Active Substance: TERBINAFINE HYDROCHLORIDE
     Indication: ONYCHOMYCOSIS
     Route: 048
     Dates: start: 20141110, end: 20150125
  2. NOVOLOG [Concomitant]
     Active Substance: INSULIN ASPART
  3. MORPHINE SULFATE. [Concomitant]
     Active Substance: MORPHINE SULFATE
     Route: 048
  4. TORSEMIDE. [Concomitant]
     Active Substance: TORSEMIDE
  5. VITAMIN C [Concomitant]
     Active Substance: ASCORBIC ACID
  6. LISINOPRIL. [Concomitant]
     Active Substance: LISINOPRIL
  7. B50 COMPLEX [Concomitant]
  8. HYDROMORPHONE HCL [Concomitant]
     Active Substance: HYDROMORPHONE HYDROCHLORIDE
  9. NORTRIPTYLINE HYDROCHLORIDE. [Concomitant]
     Active Substance: NORTRIPTYLINE HYDROCHLORIDE
  10. SYNTHROID [Concomitant]
     Active Substance: LEVOTHYROXINE SODIUM
  11. VITAMIN D3 [Concomitant]
     Active Substance: CHOLECALCIFEROL
  12. FOLIC ACID. [Concomitant]
     Active Substance: FOLIC ACID
  13. METOPROLOL SUCCINATE. [Concomitant]
     Active Substance: METOPROLOL SUCCINATE
  14. POLY IRON [Concomitant]
     Active Substance: DIETARY SUPPLEMENT
  15. CALCIUM [Concomitant]
     Active Substance: CALCIUM
  16. LIDODERM [Concomitant]
     Active Substance: LIDOCAINE
     Route: 062
  17. OMEPRAZOLE. [Concomitant]
     Active Substance: OMEPRAZOLE

REACTIONS (3)
  - Aspartate aminotransferase increased [Not Recovered/Not Resolved]
  - Globulins increased [Not Recovered/Not Resolved]
  - Alanine aminotransferase increased [Not Recovered/Not Resolved]

NARRATIVE: CASE EVENT DATE: 20141215
